FAERS Safety Report 9562938 (Version 3)
Quarter: 2013Q4

REPORT INFORMATION
  Report Type: Spontaneous
  Country: CA (occurrence: CA)
  Receive Date: 20130927
  Receipt Date: 20131218
  Transmission Date: 20140711
  Serious: Yes (Hospitalization, Other)
  Sender: FDA-Public Use
  Company Number: CA-ELI_LILLY_AND_COMPANY-CA201307008296

PATIENT
  Age: 24 Year
  Sex: Male

DRUGS (4)
  1. HUMATROPE [Suspect]
     Indication: PRODUCT USED FOR UNKNOWN INDICATION
     Dosage: 0.6 MG, QD
     Route: 058
     Dates: start: 1991
  2. CORTEF [Concomitant]
     Indication: HYPOPITUITARISM
     Dosage: UNK, BID
     Route: 065
  3. SYNTHROID [Concomitant]
     Indication: HYPOPITUITARISM
     Dosage: UNK, QD
     Route: 065
  4. TESTOSTERONE [Concomitant]
     Indication: HYPOPITUITARISM
     Dosage: UNK, QD
     Route: 065

REACTIONS (2)
  - Ankle fracture [Recovered/Resolved]
  - Fall [Recovered/Resolved]
